FAERS Safety Report 9678176 (Version 1)
Quarter: 2013Q4

REPORT INFORMATION
  Report Type: Spontaneous
  Country: US (occurrence: US)
  Receive Date: 20131108
  Receipt Date: 20131108
  Transmission Date: 20140711
  Serious: Yes (Hospitalization)
  Sender: FDA-Public Use
  Company Number: US-UPSHER-SMITH LABORATORIES, INC.-13000222

PATIENT
  Age: 69 Year
  Sex: Male

DRUGS (3)
  1. JANTOVEN [Suspect]
     Indication: ATRIAL FIBRILLATION
     Dosage: 5 MG, UNK,
     Route: 048
     Dates: start: 20130103, end: 20130116
  2. IMDUR [Concomitant]
     Dosage: UNK
  3. SPIRONOLACTONE [Concomitant]
     Dosage: UNK

REACTIONS (1)
  - Anticoagulation drug level below therapeutic [Recovered/Resolved]
